FAERS Safety Report 13397621 (Version 1)
Quarter: 2017Q2

REPORT INFORMATION
  Report Type: Spontaneous
  Country: IE (occurrence: IE)
  Receive Date: 20170403
  Receipt Date: 20170403
  Transmission Date: 20170830
  Serious: Yes (Hospitalization)
  Sender: FDA-Public Use
  Company Number: IE-INGENUS PHARMACEUTICALS NJ, LLC-ING201703-000150

PATIENT
  Age: 73 Year
  Sex: Female

DRUGS (2)
  1. CLEXANE [Concomitant]
     Active Substance: ENOXAPARIN SODIUM
     Indication: THROMBOSIS PROPHYLAXIS
  2. CARISOPRODOL AND ASPIRIN [Suspect]
     Active Substance: ASPIRIN\CARISOPRODOL
     Indication: THROMBOSIS PROPHYLAXIS

REACTIONS (5)
  - Facial bones fracture [Unknown]
  - Fall [Unknown]
  - Staphylococcal infection [Recovered/Resolved]
  - Haematoma [Recovered/Resolved]
  - Skin injury [Recovered/Resolved]
